FAERS Safety Report 4810101-1 (Version None)
Quarter: 2005Q4

REPORT INFORMATION
  Report Type: 
  Country: None (occurrence: None)
  Receive Date: 20051024
  Receipt Date: 20051013
  Transmission Date: 20060501
  Serious: Yes (Hospitalization)
  Sender: FDA-Public Use
  Company Number: 2005RR-00940

PATIENT
  Age: 66 Year
  Sex: Male

DRUGS (7)
  1. ASPIRIN [Suspect]
     Dosage: 75 MG, QD, ORAL
     Route: 048
     Dates: end: 20050917
  2. DICLOFENAC SODIUM [Suspect]
     Dosage: 100 MG, QD, ORAL
     Route: 048
     Dates: end: 20050917
  3. NIFEDIPINE [Concomitant]
  4. QUININE SULFATE [Concomitant]
  5. TAMOXIFEN [Concomitant]
  6. ZOPICLONE [Concomitant]
  7. FUROSEMIDE [Concomitant]

REACTIONS (3)
  - DYSPNOEA [None]
  - GASTRITIS EROSIVE [None]
  - HAEMOGLOBIN DECREASED [None]
